APPROVED DRUG PRODUCT: ANASTROZOLE
Active Ingredient: ANASTROZOLE
Strength: 1MG
Dosage Form/Route: TABLET;ORAL
Application: A091177 | Product #001
Applicant: SUN PHARMACEUTICAL INDUSTRIES LTD.
Approved: Jul 15, 2011 | RLD: No | RS: No | Type: DISCN